FAERS Safety Report 8172836-5 (Version None)
Quarter: 2012Q1

REPORT INFORMATION
  Report Type: 
  Country: None (occurrence: None)
  Receive Date: 20120104
  Receipt Date: 20111207
  Transmission Date: 20120608
  Serious: No
  Sender: FDA-Public Use
  Company Number: 2011HGS-002766

PATIENT
  Age: 49 Year
  Sex: Female
  Weight: 108.8633 kg

DRUGS (16)
  1. METFORM (METFORMIN) (METFORMIN) [Concomitant]
  2. CELEXA [Concomitant]
  3. LYRICA [Concomitant]
  4. BENLYSTA [Suspect]
     Indication: SYSTEMIC LUPUS ERYTHEMATOSUS
     Dosage: SEE IMAGE
     Route: 041
     Dates: start: 20110428
  5. BENLYSTA [Suspect]
     Indication: SYSTEMIC LUPUS ERYTHEMATOSUS
     Dosage: SEE IMAGE
     Route: 041
     Dates: start: 20110527
  6. BENLYSTA [Suspect]
     Indication: SYSTEMIC LUPUS ERYTHEMATOSUS
     Dosage: SEE IMAGE
     Route: 041
     Dates: start: 20110513
  7. BENLYSTA [Suspect]
     Indication: SYSTEMIC LUPUS ERYTHEMATOSUS
     Dosage: SEE IMAGE
     Route: 041
     Dates: start: 20110624
  8. BENLYSTA [Suspect]
     Indication: SYSTEMIC LUPUS ERYTHEMATOSUS
     Dosage: SEE IMAGE
     Route: 041
     Dates: start: 20110728
  9. PLAQUENIL (HYDROXYCHLOROQUINE SULFATE) (HYDROXYCHLOROQUINE SULFATE) [Concomitant]
  10. SYNTHROID (LEVOTHYROXINE SODIUM) (LEVOTHYROXINE SODIUM) [Concomitant]
  11. RESTORIL (TEMAZEPAM) (TEMAZEPAM) [Concomitant]
  12. BACLOFEN [Concomitant]
  13. OMEPRAZOLE [Concomitant]
  14. LISINOPRIL [Concomitant]
  15. LOVASTATIN [Concomitant]
  16. VITAMIN D (ERGOCALCIFEROL) (ERGOCALCIFEROL) [Concomitant]

REACTIONS (3)
  - EAR INFECTION [None]
  - ARTHRALGIA [None]
  - DRUG EFFECT DECREASED [None]
